FAERS Safety Report 8415194-0 (Version None)
Quarter: 2012Q2

REPORT INFORMATION
  Report Type: 
  Country: None (occurrence: None)
  Receive Date: 20120606
  Receipt Date: 20120530
  Transmission Date: 20120825
  Serious: No
  Sender: FDA-Public Use
  Company Number: US-PFIZER INC-2012074787

PATIENT
  Sex: Male

DRUGS (3)
  1. PENICILLIN G POTASSIUM [Suspect]
     Dosage: UNK
  2. ARIPIPRAZOLE [Concomitant]
     Dosage: 2 MG, DAILY
     Route: 048
  3. VALIUM [Suspect]
     Dosage: UNK

REACTIONS (1)
  - DRUG HYPERSENSITIVITY [None]
